FAERS Safety Report 4828193-2 (Version None)
Quarter: 2005Q4

REPORT INFORMATION
  Report Type: 
  Country: None (occurrence: None)
  Receive Date: 20051115
  Receipt Date: 20050928
  Transmission Date: 20060501
  Serious: Yes (Death)
  Sender: FDA-Public Use
  Company Number: JP-JPN-A20052304

PATIENT
  Age: 78 Year
  Sex: Male
  Weight: 57 kg

DRUGS (27)
  1. ZYLORIC [Suspect]
     Dosage: 100MG PER DAY
     Route: 048
     Dates: start: 20050622, end: 20050808
  2. PERSANTIN [Suspect]
     Indication: NEPHROTIC SYNDROME
     Dosage: 150MG TWICE PER DAY
     Route: 048
     Dates: start: 20050617, end: 20050808
  3. ARTIST [Suspect]
     Indication: HYPERTENSION
     Dosage: 10MG PER DAY
     Route: 048
     Dates: start: 20050622, end: 20050808
  4. LASIX [Suspect]
     Indication: HYPERTENSION
     Dosage: 20MG PER DAY
     Route: 048
     Dates: start: 20050613, end: 20050903
  5. ALDACTONE [Suspect]
     Indication: HYPERTENSION
     Dosage: 25MG PER DAY
     Route: 048
     Dates: start: 20050628, end: 20050809
  6. BLOPRESS [Concomitant]
     Indication: HYPERTENSION
     Dosage: 8MG PER DAY
     Route: 048
     Dates: end: 20050807
  7. NORVASC [Concomitant]
     Indication: HYPERTENSION
     Dosage: 5MG PER DAY
     Route: 048
     Dates: end: 20050831
  8. LENDORMIN [Concomitant]
     Indication: INSOMNIA
     Dosage: .25MG PER DAY
     Route: 048
     Dates: start: 20050612, end: 20050831
  9. HERZER [Concomitant]
     Dosage: 5MG PER DAY
     Route: 062
     Dates: end: 20050702
  10. NITRODERM [Concomitant]
     Dosage: 25MG PER DAY
     Route: 062
     Dates: start: 20050703, end: 20050903
  11. COMELIAN [Concomitant]
     Indication: NEPHROTIC SYNDROME
     Dosage: 150MG PER DAY
     Route: 048
     Dates: start: 20050808, end: 20050831
  12. GASTER D [Concomitant]
     Dosage: 20MG PER DAY
     Route: 048
     Dates: start: 20050808, end: 20050829
  13. CARBENIN [Concomitant]
     Indication: INFECTION
     Dosage: .5MG PER DAY
     Route: 042
     Dates: start: 20050813, end: 20050819
  14. CARBENIN [Concomitant]
     Indication: URINARY TRACT INFECTION
     Dosage: .5G PER DAY
     Route: 042
     Dates: start: 20050831, end: 20050831
  15. EPOGIN [Concomitant]
     Dosage: 6IU3 PER DAY
     Route: 058
     Dates: start: 20050823, end: 20050823
  16. VANCOMYCIN HYDROCHLORIDE [Concomitant]
     Indication: STAPHYLOCOCCAL INFECTION
     Dosage: .5MG PER DAY
     Route: 042
     Dates: start: 20050831, end: 20050902
  17. VANCOMYCIN HYDROCHLORIDE [Concomitant]
     Indication: LUNG INFECTION
     Dosage: 2G PER DAY
     Route: 042
     Dates: start: 20050912, end: 20050914
  18. FUTHAN [Concomitant]
     Indication: DISSEMINATED INTRAVASCULAR COAGULATION
     Dosage: 150MG PER DAY
     Route: 042
     Dates: start: 20050831
  19. FIRSTCIN [Concomitant]
     Dosage: 1G PER DAY
     Route: 042
     Dates: start: 20050901, end: 20050903
  20. MORPHINE [Concomitant]
     Dosage: 10MG PER DAY
     Route: 042
     Dates: start: 20050902, end: 20050905
  21. ZANTAC [Concomitant]
     Dosage: 50MG PER DAY
     Route: 042
     Dates: start: 20050903, end: 20050905
  22. OMEPRAL [Concomitant]
     Dosage: 20MG PER DAY
     Route: 042
     Dates: start: 20050905, end: 20050914
  23. PRODIF [Concomitant]
     Indication: FUNGAL INFECTION
     Dosage: 400MG PER DAY
     Route: 042
     Dates: start: 20050905, end: 20050908
  24. PAZUCROSS [Concomitant]
     Dosage: 1000MG PER DAY
     Route: 042
     Dates: start: 20050905, end: 20050914
  25. ORGARAN [Concomitant]
     Indication: DISSEMINATED INTRAVASCULAR COAGULATION
     Dosage: 2500IU PER DAY
     Route: 042
     Dates: start: 20050905, end: 20050908
  26. FUNGUARD [Concomitant]
     Indication: FUNGAL INFECTION
     Route: 042
     Dates: start: 20050909, end: 20050914
  27. ELASPOL [Concomitant]
     Indication: LUNG DISORDER
     Dosage: 300MG PER DAY
     Route: 042
     Dates: start: 20050909, end: 20050913

REACTIONS (29)
  - BLISTER [None]
  - BLOOD ALKALINE PHOSPHATASE INCREASED [None]
  - BLOOD CALCIUM DECREASED [None]
  - BLOOD CREATININE INCREASED [None]
  - BLOOD LACTATE DEHYDROGENASE INCREASED [None]
  - BLOOD POTASSIUM INCREASED [None]
  - BLOOD UREA INCREASED [None]
  - BLOOD URIC ACID DECREASED [None]
  - BLOOD URIC ACID INCREASED [None]
  - C-REACTIVE PROTEIN INCREASED [None]
  - EPIDERMOLYSIS [None]
  - EPISTAXIS [None]
  - ERYTHEMA [None]
  - HAEMATOCRIT DECREASED [None]
  - HAEMOGLOBIN DECREASED [None]
  - LIP ULCERATION [None]
  - PAIN OF SKIN [None]
  - PANCYTOPENIA [None]
  - PLATELET COUNT DECREASED [None]
  - PROTEIN TOTAL DECREASED [None]
  - PYREXIA [None]
  - RASH [None]
  - RED BLOOD CELL COUNT DECREASED [None]
  - RESPIRATORY DISTRESS [None]
  - STAPHYLOCOCCAL INFECTION [None]
  - STOMATITIS [None]
  - TOXIC EPIDERMAL NECROLYSIS [None]
  - WHITE BLOOD CELL COUNT DECREASED [None]
  - WHITE BLOOD CELL COUNT INCREASED [None]
